FAERS Safety Report 24773676 (Version 1)
Quarter: 2024Q4

REPORT INFORMATION
  Report Type: Spontaneous
  Country: US (occurrence: US)
  Receive Date: 20241225
  Receipt Date: 20241225
  Transmission Date: 20250115
  Serious: Yes (Death, Other)
  Sender: AMGEN
  Company Number: US-AMGEN-USASP2024251387

PATIENT

DRUGS (2)
  1. BEVACIZUMAB [Suspect]
     Active Substance: BEVACIZUMAB
     Indication: Glioblastoma
     Dosage: UNK
     Route: 065
  2. BINIMETINIB [Suspect]
     Active Substance: BINIMETINIB
     Indication: Glioblastoma
     Route: 065

REACTIONS (7)
  - Death [Fatal]
  - Glioblastoma [Unknown]
  - Leukopenia [Unknown]
  - Rash [Unknown]
  - Hypertransaminasaemia [Unknown]
  - Oedema peripheral [Unknown]
  - Ejection fraction decreased [Unknown]
